FAERS Safety Report 16069019 (Version 3)
Quarter: 2020Q4

REPORT INFORMATION
  Report Type: Spontaneous
  Country: US (occurrence: US)
  Receive Date: 20190313
  Receipt Date: 20201016
  Transmission Date: 20210113
  Serious: No
  Sender: FDA-Public Use
  Company Number: US-SA-2019SA068210

PATIENT

DRUGS (6)
  1. LANTUS [Suspect]
     Active Substance: INSULIN GLARGINE
     Dosage: 15 IU, QD
     Route: 065
  2. LANTUS [Suspect]
     Active Substance: INSULIN GLARGINE
     Indication: TYPE 1 DIABETES MELLITUS
     Dosage: UNK UNK, QD
     Route: 065
     Dates: start: 2015
  3. HUMALOG [Concomitant]
     Active Substance: INSULIN LISPRO
     Dosage: SLIDING SCALE WITH MEALS
  4. HUMALOG [Concomitant]
     Active Substance: INSULIN LISPRO
     Dosage: UNK UNK, PRN
  5. LANTUS [Suspect]
     Active Substance: INSULIN GLARGINE
     Dosage: 10 IU, QD
     Route: 065
  6. LANTUS [Suspect]
     Active Substance: INSULIN GLARGINE
     Dosage: 6-7 IU, BID (AM/PM)
     Route: 065
     Dates: start: 2015

REACTIONS (2)
  - Inappropriate schedule of product administration [Unknown]
  - Blood glucose decreased [Recovered/Resolved]
